FAERS Safety Report 8437235-7 (Version None)
Quarter: 2012Q2

REPORT INFORMATION
  Report Type: 
  Country: None (occurrence: None)
  Receive Date: 20120323
  Receipt Date: 20110519
  Transmission Date: 20120825
  Serious: Yes (Hospitalization, Other)
  Sender: FDA-Public Use
  Company Number: 163-21880-11053177

PATIENT
  Age: 64 Year
  Sex: Female

DRUGS (10)
  1. PRILOSEC [Concomitant]
  2. ASPIRIN [Concomitant]
  3. REVLIMID [Suspect]
     Indication: MULTIPLE MYELOMA
     Dosage: 25 MG, QD X 21 DAYS/28 DAYS, PO
     Route: 048
     Dates: start: 20060601, end: 20101201
  4. CALCIUM + VITAMIN D (OS-CAL) [Concomitant]
  5. FLAXSEED OIL (LINSEED OIL) [Concomitant]
  6. ALIGN (BIFIDOBACTERIUM INFANTIS) [Concomitant]
  7. EFFEXOR [Concomitant]
  8. M.V.I. [Concomitant]
  9. ATIVAN [Concomitant]
  10. ASCORBIC ACID [Concomitant]

REACTIONS (1)
  - ACUTE LYMPHOCYTIC LEUKAEMIA [None]
